FAERS Safety Report 6349850-5 (Version None)
Quarter: 2009Q3

REPORT INFORMATION
  Report Type: 
  Country: None (occurrence: None)
  Receive Date: 20090911
  Receipt Date: 20090907
  Transmission Date: 20100115
  Serious: Yes (Hospitalization)
  Sender: FDA-Public Use
  Company Number: PHHY2009CH38115

PATIENT
  Sex: Male

DRUGS (3)
  1. GLEEVEC [Suspect]
     Indication: CHRONIC MYELOID LEUKAEMIA
     Dosage: 30 TABLETS OF 400 MG
     Route: 048
     Dates: start: 20090902, end: 20090902
  2. SPRYCEL [Suspect]
     Indication: CHRONIC MYELOID LEUKAEMIA
     Dosage: 60 TABLETS OF 50 MG
     Dates: start: 20090902, end: 20090902
  3. REMERON [Suspect]
     Indication: DEPRESSION

REACTIONS (4)
  - ECONOMIC PROBLEM [None]
  - INTENTIONAL OVERDOSE [None]
  - SOMNOLENCE [None]
  - SUICIDE ATTEMPT [None]
